FAERS Safety Report 6374390-7 (Version None)
Quarter: 2009Q3

REPORT INFORMATION
  Report Type: 
  Country: None (occurrence: None)
  Receive Date: 20090921
  Receipt Date: 20090909
  Transmission Date: 20100115
  Serious: Yes (Disabling)
  Sender: FDA-Public Use
  Company Number: 230639J09USA

PATIENT
  Age: 65 Year
  Sex: Female

DRUGS (4)
  1. REBIF [Suspect]
     Indication: MULTIPLE SCLEROSIS
     Dosage: 44 MCG, 3 IN 1 WEEKS, SUBCUTANEOUS
     Route: 058
     Dates: start: 20090329
  2. LORTAB (VICODIN) [Concomitant]
  3. FROVA (FROVATRIPTAN SUCCINATE MONOHYDRATE) [Concomitant]
  4. TOPAMAX (TOPIRMATE) [Concomitant]

REACTIONS (1)
  - DEAFNESS UNILATERAL [None]
